FAERS Safety Report 22370159 (Version 2)
Quarter: 2023Q2

REPORT INFORMATION
  Report Type: Report from Study
  Country: DE (occurrence: DE)
  Receive Date: 20230526
  Receipt Date: 20230529
  Transmission Date: 20230722
  Serious: Yes (Hospitalization, Other)
  Sender: FDA-Public Use
  Company Number: DE-ABBVIE-5179420

PATIENT
  Sex: Female

DRUGS (8)
  1. HUMIRA [Suspect]
     Active Substance: ADALIMUMAB
     Indication: Crohn^s disease
     Dosage: FORM STRENGTH: 40MG
     Route: 058
     Dates: start: 2008
  2. METAMIZOL [Concomitant]
     Active Substance: METAMIZOLE SODIUM
     Indication: Pain
     Route: 048
  3. FOLIC ACID [Concomitant]
     Active Substance: FOLIC ACID
     Indication: Product used for unknown indication
     Route: 048
  4. SULFASALZIN KRKA [Concomitant]
     Indication: Crohn^s disease
     Route: 048
  5. METOPROLOL SUCCINATE [Concomitant]
     Active Substance: METOPROLOL SUCCINATE
     Indication: Hypertension
     Route: 048
  6. MAGNESIUM [Concomitant]
     Active Substance: MAGNESIUM
     Indication: Product used for unknown indication
     Route: 048
  7. CANDESARTAN [Concomitant]
     Active Substance: CANDESARTAN
     Indication: Hypertension
     Dosage: 32/12,5
     Route: 048
  8. CALCIUM VITAMIN D3 [Concomitant]
     Indication: Product used for unknown indication
     Route: 048

REACTIONS (10)
  - Female genital tract fistula [Recovered/Resolved]
  - Incisional hernia [Recovered/Resolved]
  - Sleep disorder [Not Recovered/Not Resolved]
  - Blood cholesterol increased [Not Recovered/Not Resolved]
  - Bursitis [Recovered/Resolved]
  - Gastric disorder [Recovering/Resolving]
  - Osteoarthritis [Recovered/Resolved]
  - Autoimmune thyroiditis [Not Recovered/Not Resolved]
  - Type 2 diabetes mellitus [Not Recovered/Not Resolved]
  - Bladder disorder [Not Recovered/Not Resolved]

NARRATIVE: CASE EVENT DATE: 20130101
